FAERS Safety Report 7425439-1 (Version None)
Quarter: 2011Q2

REPORT INFORMATION
  Report Type: 
  Country: None (occurrence: None)
  Receive Date: 20110420
  Receipt Date: 20110412
  Transmission Date: 20111010
  Serious: Yes (Other)
  Sender: FDA-Public Use
  Company Number: JP-ASTELLAS-2011JP001732

PATIENT
  Sex: Female
  Weight: 52 kg

DRUGS (5)
  1. SOLU-MEDROL [Suspect]
     Indication: INTERSTITIAL LUNG DISEASE
     Dosage: 0.5 G, BID
     Route: 041
     Dates: start: 20091207, end: 20091218
  2. ZOSYN [Concomitant]
     Indication: INTERSTITIAL LUNG DISEASE
     Dosage: 4.5 G, TID
     Route: 041
     Dates: start: 20091203, end: 20091207
  3. PROGRAF [Suspect]
     Indication: INTERSTITIAL LUNG DISEASE
     Dosage: 1.7 MG, CONTINUOUS
     Route: 041
     Dates: start: 20091207, end: 20091218
  4. PROGRAF [Concomitant]
     Dosage: 0.5 MG, BID
     Route: 048
     Dates: start: 20091218, end: 20100210
  5. PREDNISOLONE [Concomitant]
     Indication: IDIOPATHIC PULMONARY FIBROSIS
     Dosage: 1 MG/KG, UNKNOWN/D
     Route: 048

REACTIONS (2)
  - SKIN CANDIDA [None]
  - OFF LABEL USE [None]
